FAERS Safety Report 6781442-6 (Version None)
Quarter: 2010Q2

REPORT INFORMATION
  Report Type: 
  Country: None (occurrence: None)
  Receive Date: 20100621
  Receipt Date: 20100611
  Transmission Date: 20101027
  Serious: Yes (Hospitalization, Other)
  Sender: FDA-Public Use
  Company Number: US-ROCHE-690244

PATIENT
  Sex: Male
  Weight: 79.4 kg

DRUGS (20)
  1. CELLCEPT [Suspect]
     Route: 048
     Dates: start: 20060524, end: 20080922
  2. CELLCEPT [Suspect]
     Route: 048
     Dates: start: 20080923
  3. CELLCEPT [Suspect]
     Route: 048
     Dates: start: 20090410
  4. VALCYTE [Concomitant]
     Route: 048
     Dates: start: 20071214
  5. BACTRIM [Concomitant]
     Dosage: FREQUENCY: QUWF
     Route: 048
     Dates: start: 20060208
  6. LOPRESSOR [Concomitant]
  7. PRINIVIL [Concomitant]
  8. ALLOPURINOL [Concomitant]
  9. ASPIRIN [Concomitant]
  10. BRIMONIDINE [Concomitant]
  11. COLCHICINE [Concomitant]
  12. DORZOLAMIDE [Concomitant]
  13. FLECAINIDE ACETATE [Concomitant]
  14. MAGNESIUM SULFATE [Concomitant]
  15. PRILOSEC [Concomitant]
  16. PREDNISONE [Concomitant]
  17. PROGRAF [Concomitant]
  18. AMBIEN [Concomitant]
  19. DOXYCYCLINE HYCLATE [Concomitant]
  20. VIBRA-TABS [Concomitant]

REACTIONS (3)
  - ASPERGILLOSIS [None]
  - SKIN CANCER [None]
  - SQUAMOUS CELL CARCINOMA OF SKIN [None]
